FAERS Safety Report 24859928 (Version 1)
Quarter: 2025Q1

REPORT INFORMATION
  Report Type: Spontaneous
  Country: CN (occurrence: CN)
  Receive Date: 20250119
  Receipt Date: 20250119
  Transmission Date: 20250409
  Serious: Yes (Other)
  Sender: Haleon PLC
  Company Number: CN-HALEON-2222732

PATIENT
  Age: 31 Year
  Sex: Male

DRUGS (1)
  1. IBUPROFEN [Suspect]
     Active Substance: IBUPROFEN
     Indication: Pyrexia
     Dosage: SUSTAINED-RELEASE CAPSULES
     Route: 048
     Dates: start: 20250111, end: 20250114

REACTIONS (2)
  - Haemorrhage [Recovered/Resolved]
  - Epistaxis [Recovered/Resolved]

NARRATIVE: CASE EVENT DATE: 20250114
